FAERS Safety Report 12238659 (Version 1)
Quarter: 2016Q2

REPORT INFORMATION
  Report Type: Spontaneous
  Country: US (occurrence: US)
  Receive Date: 20160405
  Receipt Date: 20160405
  Transmission Date: 20160815
  Serious: No
  Sender: FDA-Public Use
  Company Number: US-TEVA-601023USA

PATIENT
  Age: 30 Year
  Sex: Male
  Weight: 74.91 kg

DRUGS (2)
  1. HEPARIN [Concomitant]
     Active Substance: HEPARIN SODIUM
     Dosage: 2500UNITS IN 250 SALINE; 18UNITS PER KG/HOUR IV
     Route: 042
     Dates: start: 201509, end: 20150928
  2. WARFARIN [Suspect]
     Active Substance: WARFARIN
     Dosage: 5 MILLIGRAM DAILY;
     Route: 048
     Dates: start: 20150927

REACTIONS (1)
  - Heart rate increased [Unknown]

NARRATIVE: CASE EVENT DATE: 201509
